FAERS Safety Report 20346327 (Version 1)
Quarter: 2022Q1

REPORT INFORMATION
  Report Type: Spontaneous
  Country: US (occurrence: US)
  Receive Date: 20220118
  Receipt Date: 20220118
  Transmission Date: 20220423
  Serious: Yes (Other)
  Sender: FDA-Public Use
  Company Number: US-PFIZER INC-2020481475

PATIENT
  Age: 68 Year
  Sex: Female

DRUGS (2)
  1. EUCRISA [Suspect]
     Active Substance: CRISABOROLE
     Indication: Dermatitis atopic
     Dosage: APPLY POD (PER ORAL DAILY) TO AFFECTED AREAS
     Route: 048
  2. EUCRISA [Suspect]
     Active Substance: CRISABOROLE
     Dosage: 2X/DAY, TO AFFECTED AREAS

REACTIONS (3)
  - Diabetes mellitus [Unknown]
  - Hip fracture [Unknown]
  - Product prescribing issue [Unknown]
